FAERS Safety Report 6247522-9 (Version None)
Quarter: 2009Q2

REPORT INFORMATION
  Report Type: 
  Country: None (occurrence: None)
  Receive Date: 20090626
  Receipt Date: 20090622
  Transmission Date: 20091009
  Serious: Yes (Other)
  Sender: FDA-Public Use
  Company Number: CA-JNJFOC-20090605578

PATIENT
  Age: 29 Year
  Sex: Female
  Weight: 69.85 kg

DRUGS (1)
  1. TRAMACET [Suspect]
     Indication: PAIN
     Dosage: 1-2 TABLETS
     Route: 048

REACTIONS (1)
  - NASAL CONGESTION [None]
